FAERS Safety Report 9826466 (Version 1)
Quarter: 2013Q4

REPORT INFORMATION
  Report Type: Spontaneous
  Country: US (occurrence: None)
  Receive Date: 20131223
  Receipt Date: 20131223
  Transmission Date: 20140711
  Serious: No
  Sender: FDA-Public Use
  Company Number: 221768LEO

PATIENT
  Age: 64 Year
  Sex: Female

DRUGS (6)
  1. PICATO [Suspect]
     Indication: ANGIOEDEMA
     Dosage: (1 IN 1 D), TOPICAL
     Dates: start: 20130503, end: 20130505
  2. HCTZ (HYDROCHLOROTHIAZIDE) (25 MG) [Concomitant]
  3. LISINOPRIL (LISINOPRIL) (5 MG) [Concomitant]
  4. FISH OIL (FISH OIL) [Concomitant]
  5. BABY ASA (ACETYLSALICYLIC ACID) (81 MG) [Concomitant]
  6. VIT D [Concomitant]

REACTIONS (6)
  - Application site pain [None]
  - Application site pain [None]
  - Application site erythema [None]
  - Application site vesicles [None]
  - Application site discharge [None]
  - Application site scab [None]
